FAERS Safety Report 8544795-4 (Version None)
Quarter: 2012Q3

REPORT INFORMATION
  Report Type: 
  Country: None (occurrence: None)
  Receive Date: 20120727
  Receipt Date: 20120720
  Transmission Date: 20120928
  Serious: Yes (Hospitalization)
  Sender: FDA-Public Use
  Company Number: JP-ROCHE-1087892

PATIENT
  Sex: Male
  Weight: 67.1 kg

DRUGS (7)
  1. DEXALTIN [Concomitant]
     Indication: STOMATITIS
     Dosage: PROPER PROPER QUANTITY
     Route: 049
     Dates: start: 20120628
  2. AMLODIPINE [Concomitant]
     Indication: HYPERTENSION
     Route: 048
     Dates: start: 20111117
  3. DIOVAN [Concomitant]
     Indication: HYPERTENSION
     Route: 048
     Dates: start: 20111117
  4. AVASTIN [Suspect]
     Indication: NON-SMALL CELL LUNG CANCER
     Route: 042
     Dates: start: 20111025
  5. LOXONIN [Concomitant]
     Indication: OSTEOARTHRITIS
     Dosage: IT IS ONE PIECE DURING ONCE/DAY.
     Route: 062
     Dates: start: 20120112
  6. TARCEVA [Suspect]
     Indication: NON-SMALL CELL LUNG CANCER
     Dosage: [YASUKUSURI]
     Route: 048
     Dates: start: 20111025, end: 20120708
  7. TARCEVA [Suspect]
     Route: 048
     Dates: start: 20120720

REACTIONS (3)
  - CAMPYLOBACTER INFECTION [None]
  - ENTEROCOLITIS [None]
  - PYREXIA [None]
